FAERS Safety Report 25199618 (Version 1)
Quarter: 2025Q2

REPORT INFORMATION
  Report Type: Other
  Country: US (occurrence: US)
  Receive Date: 20250415
  Receipt Date: 20250415
  Transmission Date: 20250716
  Serious: Yes (Life-Threatening, Hospitalization, Other)
  Sender: Chemistry & Health FZ
  Company Number: US-Chemistry + Health FZ LLC-2174942

PATIENT
  Age: 36 Year
  Sex: Female

DRUGS (8)
  1. CLOMIPRAMINE HYDROCHLORIDE [Suspect]
     Active Substance: CLOMIPRAMINE HYDROCHLORIDE
     Indication: Major depression
  2. LIDOCAINE [Interacting]
     Active Substance: LIDOCAINE
  3. ATOMOXETINE [Concomitant]
     Active Substance: ATOMOXETINE
  4. SUCCINYLCHOLINE [Concomitant]
     Active Substance: SUCCINYLCHOLINE
  5. GABAPENTIN [Concomitant]
     Active Substance: GABAPENTIN
  6. LITHIUM [Concomitant]
     Active Substance: LITHIUM
  7. KETAMINE HYDROCHLORIDE [Concomitant]
     Active Substance: KETAMINE HYDROCHLORIDE
  8. METHOHEXITAL [Concomitant]
     Active Substance: METHOHEXITAL

REACTIONS (3)
  - Status epilepticus [Recovered/Resolved]
  - Product use in unapproved indication [Unknown]
  - Drug interaction [Unknown]
